FAERS Safety Report 13042680 (Version 4)
Quarter: 2020Q1

REPORT INFORMATION
  Report Type: Spontaneous
  Country: US (occurrence: US)
  Receive Date: 20161219
  Receipt Date: 20200221
  Transmission Date: 20200409
  Serious: No
  Sender: FDA-Public Use
  Company Number: US-PFIZER INC-2016580096

PATIENT
  Age: 65 Year
  Sex: Male

DRUGS (10)
  1. ACCUPRIL [Suspect]
     Active Substance: QUINAPRIL HYDROCHLORIDE
     Dosage: UNK
  2. LIPITOR [Suspect]
     Active Substance: ATORVASTATIN CALCIUM
     Dosage: UNK
  3. CRESTOR [Suspect]
     Active Substance: ROSUVASTATIN CALCIUM
     Dosage: UNK
  4. NIASPAN [Suspect]
     Active Substance: NIACIN
     Dosage: UNK
  5. TRICOR [Suspect]
     Active Substance: FENOFIBRATE
     Dosage: UNK
  6. ZOCOR [Suspect]
     Active Substance: SIMVASTATIN
     Dosage: UNK
  7. VENLAFAXINE HCL [Concomitant]
     Active Substance: VENLAFAXINE HYDROCHLORIDE
     Dosage: 75 MG, 2X/DAY (1 CAPSULE BY MOUTH TWICE DAILY)
     Route: 048
  8. PREDNISONE. [Suspect]
     Active Substance: PREDNISONE
     Dosage: UNK
  9. EFFEXOR XR [Concomitant]
     Active Substance: VENLAFAXINE HYDROCHLORIDE
     Dosage: 75 MG, 2X/DAY
     Route: 048
  10. PRINIVIL [Suspect]
     Active Substance: LISINOPRIL
     Dosage: UNK

REACTIONS (1)
  - Drug hypersensitivity [Unknown]

NARRATIVE: CASE EVENT DATE: 20130403
